FAERS Safety Report 18186216 (Version 1)
Quarter: 2020Q3

REPORT INFORMATION
  Report Type: Spontaneous
  Country: US (occurrence: US)
  Receive Date: 20200822
  Receipt Date: 20200822
  Transmission Date: 20201103
  Serious: No
  Sender: FDA-Public Use
  Company Number: None

PATIENT
  Age: 50 Year
  Weight: 73.35 kg

DRUGS (13)
  1. MYRBETRIQ [Concomitant]
     Active Substance: MIRABEGRON
  2. HYDROCODONE [Concomitant]
     Active Substance: HYDROCODONE
  3. HYDROMORPHONE [Concomitant]
     Active Substance: HYDROMORPHONE
  4. RED YEAST RICE [Concomitant]
     Active Substance: DIETARY SUPPLEMENT
  5. MYORISAN [Suspect]
     Active Substance: ISOTRETINOIN
     Indication: ACNE
     Dosage: ?          QUANTITY:1 CAPSULE(S);?
     Route: 048
     Dates: start: 20200610, end: 20200822
  6. SILDENAFIL. [Concomitant]
     Active Substance: SILDENAFIL
  7. BUPIVACAINE. [Concomitant]
     Active Substance: BUPIVACAINE
  8. STOOL SOFTENER (DOCUSATE) [Concomitant]
     Active Substance: DOCUSATE
  9. LARATADINE [Concomitant]
  10. SULFASALAZINE. [Concomitant]
     Active Substance: SULFASALAZINE
  11. CARISOPRODOL. [Concomitant]
     Active Substance: CARISOPRODOL
  12. MELOXICAN [Concomitant]
     Active Substance: MELOXICAM
  13. OMEPRAZOLE. [Concomitant]
     Active Substance: OMEPRAZOLE

REACTIONS (6)
  - Somnolence [None]
  - Erectile dysfunction [None]
  - Dizziness [None]
  - Muscle spasms [None]
  - Loss of libido [None]
  - Disturbance in attention [None]

NARRATIVE: CASE EVENT DATE: 20200701
